FAERS Safety Report 13320349 (Version 1)
Quarter: 2017Q1

REPORT INFORMATION
  Report Type: Spontaneous
  Country: IE (occurrence: IE)
  Receive Date: 20170309
  Receipt Date: 20170309
  Transmission Date: 20170428
  Serious: Yes (Hospitalization, Other)
  Sender: FDA-Public Use
  Company Number: IE-ASTRAZENECA-2017SE22717

PATIENT
  Age: 46 Year
  Sex: Female
  Weight: 58 kg

DRUGS (7)
  1. FORXIGA [Suspect]
     Active Substance: DAPAGLIFLOZIN
     Indication: HYPERGLYCAEMIA
     Route: 048
  2. AMARYL [Concomitant]
     Active Substance: GLIMEPIRIDE
  3. TRESIBA [Concomitant]
     Active Substance: INSULIN DEGLUDEC
  4. LEVEMIR [Concomitant]
     Active Substance: INSULIN DETEMIR
     Dosage: 10-12 UNITS AT NIGHT
  5. METFORMIN [Concomitant]
     Active Substance: METFORMIN HYDROCHLORIDE
  6. NOVORAPID [Concomitant]
     Active Substance: INSULIN ASPART
     Dosage: 3-5 UNITS PRE MEALS
  7. AMARYL [Concomitant]
     Active Substance: GLIMEPIRIDE

REACTIONS (8)
  - Weight decreased [Unknown]
  - Malaise [Unknown]
  - Blood glucose fluctuation [Unknown]
  - Depressed mood [Unknown]
  - Post procedural infection [Unknown]
  - Fibromyalgia [Unknown]
  - Diabetic ketoacidosis [Unknown]
  - Hyperglycaemia [Unknown]
